FAERS Safety Report 8183654-6 (Version None)
Quarter: 2012Q1

REPORT INFORMATION
  Report Type: 
  Country: None (occurrence: None)
  Receive Date: 20120305
  Receipt Date: 20120222
  Transmission Date: 20120608
  Serious: Yes (Other)
  Sender: FDA-Public Use
  Company Number: PHHY2012BR016062

PATIENT
  Sex: Male

DRUGS (1)
  1. GENTEAL [Suspect]
     Route: 047

REACTIONS (1)
  - VIITH NERVE PARALYSIS [None]
